FAERS Safety Report 15405925 (Version 1)
Quarter: 2018Q4

REPORT INFORMATION
  Report Type: Report from Study
  Country: DE (occurrence: DE)
  Receive Date: 20180920
  Receipt Date: 20180920
  Transmission Date: 20190204
  Serious: Yes (Other)
  Sender: FDA-Public Use
  Company Number: DE-SUN PHARMACEUTICAL INDUSTRIES LTD-2018RR-184891

PATIENT
  Age: 32 Year
  Sex: Female

DRUGS (8)
  1. METOPROLOL. [Suspect]
     Active Substance: METOPROLOL
     Indication: PRODUCT USED FOR UNKNOWN INDICATION
     Dosage: BETWEEN GESTATIONAL WEEKS 0-26
     Route: 065
  2. DIHYDRALAZINE [Suspect]
     Active Substance: DIHYDRALAZINE
     Indication: PRODUCT USED FOR UNKNOWN INDICATION
     Dosage: BETWEEN GESTATIONAL WEEKS 0-13 +4
     Route: 065
  3. VALSARTAN. [Suspect]
     Active Substance: VALSARTAN
     Indication: HYPERTENSION
     Dosage: 160 MG, ON GESTATIONAL WEEKS 0-13 +4
     Route: 065
  4. LEVOTHYROXINE. [Suspect]
     Active Substance: LEVOTHYROXINE
     Indication: PRODUCT USED FOR UNKNOWN INDICATION
     Dosage: ON GESTATIONAL WEEKS 0-27 +6
     Route: 065
  5. HYDROCHLOROTHIAZIDE. [Suspect]
     Active Substance: HYDROCHLOROTHIAZIDE
     Indication: PRODUCT USED FOR UNKNOWN INDICATION
     Dosage: BETWEEN GESTATIONAL WEEKS 0-13 +4
     Route: 065
  6. METHYLDOPA. [Suspect]
     Active Substance: METHYLDOPA
     Indication: PRODUCT USED FOR UNKNOWN INDICATION
     Dosage: BETWEEN GESTATIONAL AGE 14-27 +6
     Route: 065
  7. INSULIN-ASPARTATE [Suspect]
     Active Substance: INSULIN ASPART
     Indication: PRODUCT USED FOR UNKNOWN INDICATION
     Dosage: BETWEEN GESTATIONA WEEKS 0-27 +6
     Route: 065
  8. NICOTINE. [Suspect]
     Active Substance: NICOTINE
     Indication: TOBACCO USER
     Dosage: 20 CIG/DAY BETWEEN GESTATIONAL WEEK 0-27 + 6
     Route: 065

REACTIONS (3)
  - Exposure during pregnancy [Unknown]
  - Premature baby [Unknown]
  - Contraindicated product administered [Unknown]
